FAERS Safety Report 18274957 (Version 3)
Quarter: 2023Q2

REPORT INFORMATION
  Report Type: Spontaneous
  Country: US (occurrence: US)
  Receive Date: 20200916
  Receipt Date: 20230421
  Transmission Date: 20230721
  Serious: Yes (Other)
  Sender: FDA-Public Use
  Company Number: US-GILEAD-2020-0493792

PATIENT
  Age: 56 Year
  Sex: Male
  Weight: 86.168 kg

DRUGS (35)
  1. VIREAD [Suspect]
     Active Substance: TENOFOVIR DISOPROXIL FUMARATE
     Indication: HIV infection
     Dosage: UNK
     Route: 048
     Dates: start: 2002, end: 201502
  2. VIREAD [Suspect]
     Active Substance: TENOFOVIR DISOPROXIL FUMARATE
     Dosage: UNK
     Route: 048
     Dates: start: 2001
  3. VIREAD [Suspect]
     Active Substance: TENOFOVIR DISOPROXIL FUMARATE
     Dosage: UNK
     Route: 048
     Dates: start: 2002, end: 201607
  4. DESCOVY [Concomitant]
     Active Substance: EMTRICITABINE\TENOFOVIR ALAFENAMIDE FUMARATE
  5. BIKTARVY [Concomitant]
     Active Substance: BICTEGRAVIR SODIUM\EMTRICITABINE\TENOFOVIR ALAFENAMIDE FUMARATE
  6. CRIXIVAN [Concomitant]
     Active Substance: INDINAVIR SULFATE
  7. COMBIVIR [Concomitant]
     Active Substance: LAMIVUDINE\ZIDOVUDINE
  8. GABAPENTIN [Concomitant]
     Active Substance: GABAPENTIN
  9. NORVIR [Concomitant]
     Active Substance: RITONAVIR
  10. EPIVIR [Concomitant]
     Active Substance: LAMIVUDINE
  11. NORTRIPTYLINE [Concomitant]
     Active Substance: NORTRIPTYLINE
  12. AMLODIPINE [Concomitant]
     Active Substance: AMLODIPINE BESYLATE
  13. PRAVASTATIN [Concomitant]
     Active Substance: PRAVASTATIN
  14. ZOLPIDEM [Concomitant]
     Active Substance: ZOLPIDEM TARTRATE
  15. LISINOPRIL [Concomitant]
     Active Substance: LISINOPRIL
  16. NEXIUM I.V. [Concomitant]
     Active Substance: ESOMEPRAZOLE SODIUM
  17. PREDNISONE [Concomitant]
     Active Substance: PREDNISONE
  18. SILDENAFIL [Concomitant]
     Active Substance: SILDENAFIL
  19. SULFASALAZINE [Concomitant]
     Active Substance: SULFASALAZINE
  20. DICLOFENAC POTASSIUM [Concomitant]
     Active Substance: DICLOFENAC POTASSIUM
  21. DIOVAN [Concomitant]
     Active Substance: VALSARTAN
  22. SERTRALINE [Concomitant]
     Active Substance: SERTRALINE HYDROCHLORIDE
  23. LOSARTAN [Concomitant]
     Active Substance: LOSARTAN
  24. FUROSEMIDE [Concomitant]
     Active Substance: FUROSEMIDE
  25. SEROSTIM [Concomitant]
     Active Substance: SOMATROPIN
  26. COLCHICINE [Concomitant]
     Active Substance: COLCHICINE
  27. TIVICAY [Concomitant]
     Active Substance: DOLUTEGRAVIR SODIUM
  28. KALETRA [Concomitant]
     Active Substance: LOPINAVIR\RITONAVIR
  29. HYDROXYCHLOROQUINE [Concomitant]
     Active Substance: HYDROXYCHLOROQUINE
  30. MITIGARE [Concomitant]
     Active Substance: COLCHICINE
  31. TRAMADOL [Concomitant]
     Active Substance: TRAMADOL
  32. DRONABINOL [Concomitant]
     Active Substance: DRONABINOL
  33. ALLOPURINOL [Concomitant]
     Active Substance: ALLOPURINOL
  34. ALPRAZOLAM [Concomitant]
     Active Substance: ALPRAZOLAM
  35. CLONIDINE [Concomitant]
     Active Substance: CLONIDINE

REACTIONS (8)
  - Chronic kidney disease [Unknown]
  - Chronic kidney disease [Not Recovered/Not Resolved]
  - Chronic kidney disease [Not Recovered/Not Resolved]
  - Bone demineralisation [Not Recovered/Not Resolved]
  - Hypertension [Not Recovered/Not Resolved]
  - Pain [Unknown]
  - Emotional distress [Unknown]
  - Blood creatinine increased [Not Recovered/Not Resolved]

NARRATIVE: CASE EVENT DATE: 20140401
